FAERS Safety Report 17670861 (Version 3)
Quarter: 2020Q2

REPORT INFORMATION
  Report Type: Spontaneous
  Country: US (occurrence: US)
  Receive Date: 20200415
  Receipt Date: 20200529
  Transmission Date: 20200713
  Serious: Yes (Other)
  Sender: FDA-Public Use
  Company Number: US-ASTRAZENECA-2020SE48723

PATIENT
  Age: 792 Month
  Sex: Male
  Weight: 102.5 kg

DRUGS (3)
  1. BYDUREON BCISE [Suspect]
     Active Substance: EXENATIDE
     Route: 058
     Dates: start: 202002
  2. BYDUREON BCISE [Suspect]
     Active Substance: EXENATIDE
     Route: 058
     Dates: start: 2015, end: 202001
  3. BYDUREON [Suspect]
     Active Substance: EXENATIDE
     Dosage: 2.0MG UNKNOWN
     Route: 058
     Dates: start: 1997, end: 2015

REACTIONS (10)
  - Cardiac septal defect [Unknown]
  - Contusion [Recovered/Resolved]
  - Fall [Recovered/Resolved]
  - Product solubility abnormal [Unknown]
  - Device malfunction [Unknown]
  - Cardiac disorder [Unknown]
  - Insomnia [Not Recovered/Not Resolved]
  - Haemorrhage [Unknown]
  - Cardiac output decreased [Unknown]
  - Needle issue [Unknown]

NARRATIVE: CASE EVENT DATE: 2018
